FAERS Safety Report 20233159 (Version 4)
Quarter: 2022Q4

REPORT INFORMATION
  Report Type: Spontaneous
  Country: CO (occurrence: CO)
  Receive Date: 20211227
  Receipt Date: 20221021
  Transmission Date: 20230112
  Serious: Yes (Hospitalization, Other)
  Sender: FDA-Public Use
  Company Number: CO-AMGEN-COLSP2021203829

PATIENT
  Age: 60 Year
  Sex: Female
  Weight: 60 kg

DRUGS (15)
  1. MVASI [Suspect]
     Active Substance: BEVACIZUMAB-AWWB
     Indication: Malignant oligodendroglioma
     Dosage: 100 MILLIGRAM
     Route: 042
     Dates: start: 20210821
  2. IRINOTECAN [Concomitant]
     Active Substance: IRINOTECAN
     Indication: Oligodendroglioma
     Dosage: 183 MILLIGRAM
     Route: 042
     Dates: start: 20210701
  3. IRINOTECAN [Concomitant]
     Active Substance: IRINOTECAN
     Dosage: 100MG/5ML INJ. SOLUTION
  4. ATROPINE [Concomitant]
     Active Substance: ATROPINE
     Indication: Oligodendroglioma
     Dosage: 0.5 MILLIGRAM
     Route: 058
     Dates: start: 20210701
  5. CALCIUM\CHOLECALCIFEROL [Concomitant]
     Active Substance: CALCIUM\CHOLECALCIFEROL
     Indication: Osteoporosis
     Dosage: UNK UNK, QD (CALCIUM 1500 MG/VITAMIN D 800 IU)
     Route: 048
     Dates: start: 20210701
  6. VITAMIN D3 [Concomitant]
     Active Substance: CHOLECALCIFEROL
     Indication: Osteoporosis
     Dosage: UNK UNK, QD
     Route: 048
     Dates: start: 20211025
  7. ESOMEPRAZOLE [Concomitant]
     Active Substance: ESOMEPRAZOLE
     Indication: Gastritis
     Dosage: UNK UNK, QD
     Route: 048
     Dates: start: 20211025
  8. LACTULOSE [Concomitant]
     Active Substance: LACTULOSE
     Indication: Constipation
     Dosage: UNK
     Dates: start: 20210701
  9. ZOLEDRONIC ACID [Concomitant]
     Active Substance: ZOLEDRONIC ACID
     Indication: Osteoporosis
     Dosage: 5 MILLIGRAM
     Route: 042
     Dates: start: 20210701
  10. DEXAMETHASONE PHOSPHATE [Concomitant]
     Active Substance: DEXAMETHASONE PHOSPHATE
     Indication: Oligodendroglioma
     Dosage: 8MG/2ML
     Route: 042
  11. FOSAPREPITANT [Concomitant]
     Active Substance: FOSAPREPITANT
     Indication: Oligodendroglioma
     Dosage: 150 MILLIGRAM
     Route: 042
     Dates: start: 20210821
  12. ONDANSETRON [Concomitant]
     Active Substance: ONDANSETRON
     Indication: Oligodendroglioma
     Dosage: 8 MG/4 ML
     Route: 042
  13. CALCIUM CITRATE [Concomitant]
     Active Substance: CALCIUM CITRATE
     Indication: Osteoporosis
     Dosage: 1500 MILLIGRAM, QD
     Route: 048
     Dates: start: 20211025
  14. ATROPINE SULFATE [Concomitant]
     Active Substance: ATROPINE SULFATE
     Indication: Oligodendroglioma
     Dosage: 1MG/ML (0.1%)
     Route: 030
  15. OMEPRAZOLE [Concomitant]
     Active Substance: OMEPRAZOLE
     Indication: Gastritis
     Dosage: 40 MILLIGRAM, BID, CAPSULE EVERY 12 HOUR(S) FOR 30 DAY(S).
     Route: 048
     Dates: start: 20211025

REACTIONS (7)
  - Rectal abscess [Not Recovered/Not Resolved]
  - Off label use [Not Recovered/Not Resolved]
  - Amnesia [Not Recovered/Not Resolved]
  - Balance disorder [Not Recovered/Not Resolved]
  - Vertigo [Not Recovered/Not Resolved]
  - Nausea [Not Recovered/Not Resolved]
  - Headache [Not Recovered/Not Resolved]

NARRATIVE: CASE EVENT DATE: 20210821
